FAERS Safety Report 16863186 (Version 1)
Quarter: 2019Q3

REPORT INFORMATION
  Report Type: Report from Study
  Country: RO (occurrence: RO)
  Receive Date: 20190927
  Receipt Date: 20190927
  Transmission Date: 20191005
  Serious: Yes (Life-Threatening, Other)
  Sender: FDA-Public Use
  Company Number: RO-TAIHO ONCOLOGY  INC-IM-2019-00533

PATIENT
  Age: 71 Year
  Sex: Male
  Weight: 103 kg

DRUGS (1)
  1. LONSURF [Suspect]
     Active Substance: TIPIRACIL HYDROCHLORIDE\TRIFLURIDINE
     Indication: COLON CANCER METASTATIC
     Dosage: 70 MG (35 MG/M2) BID ON DAYS 1-5 AND 8-12 OF EACH 28-DAY CYCLE
     Route: 048
     Dates: start: 20190731, end: 20190908

REACTIONS (2)
  - Blood bilirubin increased [Recovering/Resolving]
  - Hepatic failure [Recovering/Resolving]

NARRATIVE: CASE EVENT DATE: 20190925
